FAERS Safety Report 15555182 (Version 2)
Quarter: 2019Q1

REPORT INFORMATION
  Report Type: Spontaneous
  Country: US (occurrence: US)
  Receive Date: 20181026
  Receipt Date: 20190205
  Transmission Date: 20190417
  Serious: Yes (Hospitalization)
  Sender: FDA-Public Use
  Company Number: US-GLAXOSMITHKLINE-US2018189069

PATIENT
  Sex: Female
  Weight: 32 kg

DRUGS (1)
  1. PREVACID [Suspect]
     Active Substance: LANSOPRAZOLE
     Indication: GASTROOESOPHAGEAL REFLUX DISEASE
     Dosage: UNK UNK, BID
     Dates: start: 20170630

REACTIONS (5)
  - Recalled product [Unknown]
  - Product use in unapproved indication [Unknown]
  - Colitis [Unknown]
  - Inappropriate schedule of product administration [Unknown]
  - Overdose [Unknown]
